FAERS Safety Report 12536032 (Version 1)
Quarter: 2016Q3

REPORT INFORMATION
  Report Type: Spontaneous
  Country: US (occurrence: None)
  Receive Date: 20160706
  Receipt Date: 20160706
  Transmission Date: 20161109
  Serious: Yes (Other)
  Sender: FDA-Public Use
  Company Number: None

PATIENT
  Age: 69 Year
  Sex: Female
  Weight: 68.95 kg

DRUGS (8)
  1. STOOL SOFTENER [Concomitant]
     Active Substance: DOCUSATE CALCIUM
  2. OMEPRAZOLE. [Concomitant]
     Active Substance: OMEPRAZOLE
  3. VALSARTIN [Concomitant]
  4. CITALOPRAM [Concomitant]
     Active Substance: CITALOPRAM HYDROBROMIDE
  5. PRAVASTATIN. [Concomitant]
     Active Substance: PRAVASTATIN
  6. CALCIUM WITH D [Concomitant]
     Active Substance: CALCIUM\VITAMIN D
  7. TIZANIDINE. [Concomitant]
     Active Substance: TIZANIDINE
  8. BELSOMRA [Suspect]
     Active Substance: SUVOREXANT
     Indication: HOT FLUSH
     Dosage: 1 PILL ONCE A DAY AT BEDTIME, MOUTH
     Route: 048
     Dates: start: 20160328, end: 20160522

REACTIONS (11)
  - Drug effect variable [None]
  - Vertigo [None]
  - Somnolence [None]
  - Disturbance in attention [None]
  - Depression [None]
  - Feeling abnormal [None]
  - Fall [None]
  - Lethargy [None]
  - Change of bowel habit [None]
  - Sleep disorder [None]
  - Amnesia [None]

NARRATIVE: CASE EVENT DATE: 201605
